FAERS Safety Report 5245332-2 (Version None)
Quarter: 2007Q1

REPORT INFORMATION
  Report Type: 
  Country: None (occurrence: None)
  Receive Date: 20070223
  Receipt Date: 20070214
  Transmission Date: 20070707
  Serious: Yes (Other)
  Sender: FDA-Public Use
  Company Number: ES-AMGEN-UK209700

PATIENT
  Age: 67 Year

DRUGS (2)
  1. MIMPARA [Suspect]
     Indication: PRE-EXISTING DISEASE
     Route: 065
     Dates: start: 20061006, end: 20061102
  2. CALCIUM CARBONATE [Concomitant]

REACTIONS (3)
  - BLOOD PARATHYROID HORMONE INCREASED [None]
  - DIARRHOEA [None]
  - HYPOPHOSPHATAEMIA [None]
